FAERS Safety Report 4874978-6 (Version None)
Quarter: 2006Q1

REPORT INFORMATION
  Report Type: 
  Country: None (occurrence: None)
  Receive Date: 20060104
  Receipt Date: 20051228
  Transmission Date: 20060701
  Serious: Yes (Death)
  Sender: FDA-Public Use
  Company Number: 200511232BVD

PATIENT
  Age: 82 Year
  Sex: Female
  Weight: 65 kg

DRUGS (1)
  1. AVELOX [Suspect]
     Indication: PNEUMONIA
     Dosage: ORAL
     Route: 048
     Dates: start: 20051130, end: 20051207

REACTIONS (5)
  - CLOSTRIDIUM COLITIS [None]
  - DIARRHOEA HAEMORRHAGIC [None]
  - MULTI-ORGAN FAILURE [None]
  - SEPSIS [None]
  - SEPTIC SHOCK [None]
